FAERS Safety Report 7028027-4 (Version None)
Quarter: 2010Q3

REPORT INFORMATION
  Report Type: 
  Country: None (occurrence: None)
  Receive Date: 20100930
  Receipt Date: 20100927
  Transmission Date: 20110219
  Serious: Yes (Death)
  Sender: FDA-Public Use
  Company Number: 2010SP051337

PATIENT
  Age: 60 Year
  Sex: Male

DRUGS (1)
  1. MIRTAZAPINE [Suspect]
     Indication: DEPRESSION
     Dosage: 30 MG;HS
     Dates: start: 20100901, end: 20100901

REACTIONS (2)
  - MULTI-ORGAN FAILURE [None]
  - SOMNOLENCE [None]
